FAERS Safety Report 11728954 (Version 1)
Quarter: 2015Q4

REPORT INFORMATION
  Report Type: Spontaneous
  Country: FR (occurrence: FR)
  Receive Date: 20151112
  Receipt Date: 20151112
  Transmission Date: 20160304
  Serious: Yes (Hospitalization)
  Sender: FDA-Public Use
  Company Number: FR-JNJFOC-20151103250

PATIENT
  Age: 25 Day
  Sex: Female
  Weight: 3 kg

DRUGS (2)
  1. ZYMADUO [Concomitant]
     Route: 065
  2. RISPERDAL [Suspect]
     Active Substance: RISPERIDONE
     Indication: WRONG DRUG ADMINISTERED
     Route: 048
     Dates: start: 20151008, end: 20151008

REACTIONS (6)
  - Hypotonia [Unknown]
  - Tachycardia [Recovered/Resolved]
  - Product packaging confusion [Recovered/Resolved]
  - Medication error [Unknown]
  - Somnolence [Recovered/Resolved]
  - Wrong drug administered [Unknown]

NARRATIVE: CASE EVENT DATE: 20151008
